FAERS Safety Report 9988145 (Version 1)
Quarter: 2014Q1

REPORT INFORMATION
  Report Type: Spontaneous
  Country: US (occurrence: US)
  Receive Date: 20140308
  Receipt Date: 20140308
  Transmission Date: 20141002
  Serious: No
  Sender: FDA-Public Use
  Company Number: US-TEVA-466111USA

PATIENT
  Sex: Female

DRUGS (1)
  1. PROAIR HFA [Suspect]
     Dosage: 90 MCG, FREQUENCY NOT PROVIDED
     Route: 055

REACTIONS (2)
  - Dyspnoea [Unknown]
  - Device malfunction [Unknown]
